FAERS Safety Report 8676959 (Version 3)
Quarter: 2012Q4

REPORT INFORMATION
  Report Type: 
  Country: US (occurrence: US)
  Receive Date: 20120723
  Receipt Date: 20121011
  Transmission Date: 20130627
  Serious: Yes (Other)
  Sender: FDA-Public Use
  Company Number: US-009507513-1207USA004953

PATIENT
  Sex: Male

DRUGS (4)
  1. PEGINTRON [Suspect]
     Indication: HEPATITIS C
     Dosage: 0.5 ml, UNK
     Dates: start: 20120413
  2. PEGINTRON [Suspect]
     Dosage: 0.4 ml, UNK
     Dates: end: 20120831
  3. REBETOL [Suspect]
     Indication: HEPATITIS C
     Dosage: UNK
     Dates: start: 20120413, end: 20120831
  4. VICTRELIS [Suspect]
     Indication: HEPATITIS C
     Dosage: UNK
     Dates: start: 20120511, end: 20120831

REACTIONS (26)
  - Anaemia [Unknown]
  - White blood cell count decreased [Unknown]
  - Dysgeusia [Unknown]
  - Hepatitis C [Unknown]
  - Hypersomnia [Unknown]
  - Feeling abnormal [Unknown]
  - Feeling abnormal [Unknown]
  - Anger [Unknown]
  - Agitation [Unknown]
  - Rash [Unknown]
  - Nausea [Unknown]
  - Headache [Unknown]
  - Fatigue [Unknown]
  - Irritability [Unknown]
  - Depression [Unknown]
  - Depressed mood [Unknown]
  - Malaise [Unknown]
  - Pruritus generalised [Not Recovered/Not Resolved]
  - Fatigue [Unknown]
  - Poor quality sleep [Unknown]
  - Injection site reaction [Unknown]
  - Drug ineffective [Unknown]
  - Depressed mood [Unknown]
  - Fatigue [Unknown]
  - Depression [Unknown]
  - Pruritus [Unknown]
